FAERS Safety Report 9140364 (Version 1)
Quarter: 2013Q1

REPORT INFORMATION
  Report Type: Spontaneous
  Country: US (occurrence: None)
  Receive Date: 20130227
  Receipt Date: 20130227
  Transmission Date: 20140127
  Serious: Yes (Death)
  Sender: FDA-Public Use
  Company Number: SYM-2013-00144

PATIENT
  Age: 56 Year
  Sex: Female

DRUGS (5)
  1. TRAMADOL [Suspect]
     Route: 048
  2. DIAZEPAM (DIAZEPAM) (DIAZEPAM) [Suspect]
     Route: 048
  3. ALPRAZOLAM (ALPRAZOLAM) (ALPRAZOLAM) [Suspect]
     Route: 048
  4. FENTANYL [Suspect]
     Route: 048
  5. CYCLOBENZAPRINE [Suspect]
     Route: 048

REACTIONS (1)
  - Drug abuse [None]
